FAERS Safety Report 22960864 (Version 4)
Quarter: 2025Q1

REPORT INFORMATION
  Report Type: Spontaneous
  Country: US (occurrence: US)
  Receive Date: 20230920
  Receipt Date: 20250218
  Transmission Date: 20250408
  Serious: No
  Sender: LUPIN
  Company Number: US-LUPIN PHARMACEUTICALS INC.-2023-07687

PATIENT

DRUGS (1)
  1. ALBUTEROL SULFATE [Suspect]
     Active Substance: ALBUTEROL SULFATE
     Indication: Cough
     Dosage: UNK, QD (12 PUFFS A DAY)
     Dates: start: 20230906

REACTIONS (3)
  - Device issue [Unknown]
  - Product packaging issue [Unknown]
  - Drug dose omission by device [Unknown]
